FAERS Safety Report 10060657 (Version 2)
Quarter: 2014Q2

REPORT INFORMATION
  Report Type: Spontaneous
  Country: CA (occurrence: CA)
  Receive Date: 20140404
  Receipt Date: 20140414
  Transmission Date: 20141212
  Serious: Yes (Hospitalization)
  Sender: FDA-Public Use
  Company Number: CA-PFIZER INC-2014093248

PATIENT
  Age: 79 Year
  Sex: Male

DRUGS (18)
  1. RAMIPRIL [Suspect]
     Indication: PROPHYLAXIS
     Dosage: 10 MG, DAILY
     Route: 065
     Dates: start: 2004
  2. LORAZEPAM [Suspect]
     Indication: INSOMNIA
     Dosage: 2 MG, AT BEDTIME
     Route: 065
  3. LORAZEPAM [Suspect]
     Dosage: 1 MG, AT BEDTIME
     Route: 065
  4. EPLERENONE [Suspect]
     Indication: CARDIAC FAILURE
     Dosage: 25 MG, DAILY
     Route: 065
  5. TRAZODONE HYDROCHLORIDE [Suspect]
     Indication: INSOMNIA
     Dosage: 100 MG, AT BEDTIME
     Route: 065
  6. ACETYLSALICYLIC ACID [Concomitant]
     Indication: PROPHYLAXIS
     Dosage: 81 MG, DAILY
     Dates: start: 2004
  7. METOPROLOL [Concomitant]
     Indication: PROPHYLAXIS
     Dosage: 50 MG, 1/2 TABLET TWICE DAILY
     Dates: start: 2004
  8. ATORVASTATIN [Concomitant]
     Indication: PROPHYLAXIS
     Dosage: 40 MG, DAILY
     Dates: start: 2004
  9. METFORMIN [Concomitant]
     Indication: DIABETES MELLITUS
     Dosage: 500 MG, 2X/DAY
  10. GLYBURIDE [Concomitant]
     Indication: DIABETES MELLITUS
     Dosage: 100 MG, 2X/DAY
  11. SITAGLIPTIN PHOSPHATE [Concomitant]
     Indication: DIABETES MELLITUS
     Dosage: 100 MG, DAILY
  12. VITAMIN D [Concomitant]
     Indication: OSTEOPOROSIS
     Dosage: 100 IU, 2X/DAY
  13. LACTULOSE [Concomitant]
     Indication: CONSTIPATION
     Dosage: 30 ML, AS NEEDED
  14. METAMUCIL [Concomitant]
     Indication: CONSTIPATION
     Dosage: 1 TBSP DAILY
  15. TOLTERODINE [Concomitant]
     Indication: NOCTURIA
     Dosage: 1 MG, 2X/DAY
  16. PANTOPRAZOLE [Concomitant]
     Indication: UPPER GASTROINTESTINAL HAEMORRHAGE
     Dosage: 40 MG, 2X/DAY
  17. PANTOPRAZOLE [Concomitant]
     Dosage: 40 MG, DAILY
  18. VITAMIN B12 [Concomitant]
     Indication: VITAMIN B12 DEFICIENCY
     Dosage: 1200 UG, DAILY

REACTIONS (7)
  - Mobility decreased [Recovered/Resolved]
  - Balance disorder [Recovered/Resolved]
  - Blood potassium increased [Unknown]
  - Orthostatic hypotension [Recovered/Resolved]
  - Hypotension [Recovering/Resolving]
  - Dizziness [Recovered/Resolved]
  - Fall [Unknown]
